FAERS Safety Report 17547819 (Version 1)
Quarter: 2020Q1

REPORT INFORMATION
  Report Type: Spontaneous
  Country: GB (occurrence: GB)
  Receive Date: 20200317
  Receipt Date: 20200317
  Transmission Date: 20200409
  Serious: Yes (Life-Threatening, Other)
  Sender: FDA-Public Use
  Company Number: GB-ALK-ABELLO A/S-2019AA001597

PATIENT

DRUGS (5)
  1. RIVAROXABAN [Concomitant]
     Active Substance: RIVAROXABAN
  2. IRBESARTAN. [Concomitant]
     Active Substance: IRBESARTAN
  3. SALBUTAMOL [Concomitant]
     Active Substance: ALBUTEROL
  4. ALLOPURINOL. [Concomitant]
     Active Substance: ALLOPURINOL
  5. BEE VENOM [Suspect]
     Active Substance: APIS MELLIFERA VENOM
     Indication: ALLERGY TO ARTHROPOD STING
     Dosage: 100 MICROGRAM
     Route: 058
     Dates: start: 20180312

REACTIONS (3)
  - Injection site erythema [Recovered/Resolved]
  - Anaphylactic reaction [Recovered/Resolved with Sequelae]
  - Respiratory tract infection viral [Unknown]

NARRATIVE: CASE EVENT DATE: 20190318
